FAERS Safety Report 7655450-7 (Version None)
Quarter: 2011Q3

REPORT INFORMATION
  Report Type: 
  Country: None (occurrence: None)
  Receive Date: 20110729
  Receipt Date: 20110718
  Transmission Date: 20111222
  Serious: Yes (Death, Hospitalization)
  Sender: FDA-Public Use
  Company Number: PYR-11-21

PATIENT
  Age: 53 Year
  Sex: Male

DRUGS (5)
  1. PYRAZINAMIDE [Suspect]
     Indication: DISSEMINATED TUBERCULOSIS
  2. RIFAMPICIN [Concomitant]
  3. COTRIM [Concomitant]
  4. ISONIAZID [Concomitant]
  5. ETHAMBUTOL HYDROCHLORIDE [Concomitant]

REACTIONS (7)
  - TOXIC EPIDERMAL NECROLYSIS [None]
  - CIRCULATORY COLLAPSE [None]
  - GENERAL PHYSICAL HEALTH DETERIORATION [None]
  - NORMOCHROMIC NORMOCYTIC ANAEMIA [None]
  - SKIN LESION [None]
  - ASTHENIA [None]
  - ORAL CANDIDIASIS [None]
